FAERS Safety Report 9181378 (Version 2)
Quarter: 2013Q2

REPORT INFORMATION
  Report Type: Spontaneous
  Country: US (occurrence: US)
  Receive Date: 20130322
  Receipt Date: 20130501
  Transmission Date: 20140414
  Serious: No
  Sender: FDA-Public Use
  Company Number: US-PFIZER INC-2013069974

PATIENT
  Age: 58 Year
  Sex: Female
  Weight: 86.17 kg

DRUGS (4)
  1. AZULFIDINE [Suspect]
     Dosage: UNK
  2. CODEINE PHOSPHATE [Suspect]
     Dosage: UNK
  3. BUSPAR [Suspect]
     Dosage: UNK
  4. IMIPRAMINE HYDROCHLORIDE [Suspect]
     Dosage: UNK

REACTIONS (3)
  - Drug hypersensitivity [Unknown]
  - Palpitations [Unknown]
  - Feeling abnormal [Unknown]
